FAERS Safety Report 8669427 (Version 3)
Quarter: 2012Q4

REPORT INFORMATION
  Report Type: Report from Study
  Country: DE (occurrence: DE)
  Receive Date: 20120718
  Receipt Date: 20121002
  Transmission Date: 20130627
  Serious: Yes (Hospitalization)
  Sender: FDA-Public Use
  Company Number: DE-BRISTOL-MYERS SQUIBB COMPANY-15511553

PATIENT
  Age: 80 Year
  Sex: Female
  Weight: 53 kg

DRUGS (11)
  1. ERBITUX SOLN FOR INF [Suspect]
     Indication: COLORECTAL CANCER METASTATIC
     Dosage: Interr 9Aug10, Reintroduced 6Dec10 IV inf.(390mg)250mg/m2-1in1wk-9Aug10-9Nov10
     Route: 042
     Dates: start: 20100802, end: 20101109
  2. 5-FLUOROURACIL [Concomitant]
     Indication: COLORECTAL CANCER METASTATIC
     Dosage: 1DF=400mg/m2 on day1P:2-9Aug10
2400mg/m2:(1in1wk):2-9Aug10
IV-7D
IV bolus-464D
     Route: 040
     Dates: start: 20100802
  3. IRINOTECAN HCL [Concomitant]
     Indication: COLORECTAL CANCER METASTATIC
     Route: 042
     Dates: start: 20100802, end: 20111109
  4. FOLINATE [Concomitant]
     Indication: COLORECTAL CANCER METASTATIC
     Dosage: CA-Folinat/Na-Folinat/Folinsaeure.
     Dates: start: 20100802, end: 20111109
  5. FENISTIL [Concomitant]
     Indication: PREMEDICATION
     Dates: start: 20100802, end: 20100809
  6. RANITIC [Concomitant]
     Indication: PREMEDICATION
     Dosage: Ranitic inject AMO.
     Dates: start: 20100802, end: 20100809
  7. DEXTROMETHORPHAN [Concomitant]
     Indication: PREMEDICATION
     Dates: start: 20100802, end: 20100809
  8. KEVATRIL [Concomitant]
     Indication: PREMEDICATION
     Dates: start: 20100802, end: 20100809
  9. GRANISETRON [Concomitant]
     Indication: PREMEDICATION
     Dosage: Granisetron Hexal
     Dates: start: 20100802, end: 20100809
  10. CORTICOSTEROID [Concomitant]
     Indication: PREMEDICATION
     Dosage: 2Aug-9Aug10-IV-16mg
     Route: 048
     Dates: start: 20100802, end: 20100809
  11. FUROSEMIDE [Concomitant]
     Indication: OEDEMA PERIPHERAL

REACTIONS (2)
  - General physical health deterioration [Recovered/Resolved with Sequelae]
  - Femur fracture [Not Recovered/Not Resolved]
